FAERS Safety Report 13815178 (Version 2)
Quarter: 2017Q3

REPORT INFORMATION
  Report Type: Spontaneous
  Country: FR (occurrence: FR)
  Receive Date: 20170731
  Receipt Date: 20170807
  Transmission Date: 20171127
  Serious: Yes (Other)
  Sender: FDA-Public Use
  Company Number: FR-PFIZER INC-2017323171

PATIENT
  Age: 60 Year
  Sex: Female

DRUGS (2)
  1. BEAGYNE [Suspect]
     Active Substance: FLUCONAZOLE
     Indication: VULVOVAGINAL MYCOTIC INFECTION
     Dosage: 150 MG, 1X/DAY
     Route: 048
     Dates: start: 201704, end: 201704
  2. BEAGYNE [Suspect]
     Active Substance: FLUCONAZOLE
     Dosage: UNK
     Dates: start: 201706

REACTIONS (8)
  - Myalgia [Recovered/Resolved]
  - Fatigue [Recovered/Resolved]
  - Nausea [Recovered/Resolved]
  - Paraesthesia [Recovered/Resolved]
  - Hyperhidrosis [Recovered/Resolved]
  - Tinnitus [Recovered/Resolved]
  - Headache [Recovered/Resolved]
  - Back pain [Recovered/Resolved]

NARRATIVE: CASE EVENT DATE: 201704
